FAERS Safety Report 4883160-8 (Version None)
Quarter: 2006Q1

REPORT INFORMATION
  Report Type: 
  Country: None (occurrence: None)
  Receive Date: 20060118
  Receipt Date: 20060111
  Transmission Date: 20060701
  Serious: Yes (Hospitalization)
  Sender: FDA-Public Use
  Company Number: US-JNJFOC-20060102577

PATIENT
  Sex: Female
  Weight: 138.35 kg

DRUGS (1)
  1. REMICADE [Suspect]
     Indication: RHEUMATOID ARTHRITIS
     Dosage: DATE OF ADMINISTRATION:  SOMETIME IN THE FALL OF 2005
     Route: 042

REACTIONS (1)
  - COMPRESSION FRACTURE [None]
